FAERS Safety Report 16691952 (Version 1)
Quarter: 2019Q3

REPORT INFORMATION
  Report Type: Spontaneous
  Country: US (occurrence: US)
  Receive Date: 20190625
  Receipt Date: 20190625
  Transmission Date: 20191004
  Serious: Yes (Hospitalization)
  Sender: FDA-Public Use
  Company Number: None

PATIENT
  Age: 11 Year
  Sex: Female

DRUGS (1)
  1. ACTHAR [Suspect]
     Active Substance: CORTICOTROPIN
     Indication: EPILEPSY
     Dosage: ?          OTHER DOSE:TAPER FROM 32U/6.4;?
     Route: 030

REACTIONS (2)
  - Product dose omission [None]
  - Hospitalisation [None]

NARRATIVE: CASE EVENT DATE: 20190624
